FAERS Safety Report 9166174 (Version 3)
Quarter: 2013Q3

REPORT INFORMATION
  Report Type: Report from Study
  Country: US (occurrence: US)
  Receive Date: 20130315
  Receipt Date: 20130827
  Transmission Date: 20140515
  Serious: Yes (Hospitalization)
  Sender: FDA-Public Use
  Company Number: US-ABBOTT-13P-163-1059817-00

PATIENT
  Age: 48 Year
  Sex: Male
  Weight: 89.89 kg

DRUGS (6)
  1. HUMIRA [Suspect]
     Indication: CROHN^S DISEASE
     Dates: start: 20121229
  2. PREDNISONE [Suspect]
     Indication: PRODUCT USED FOR UNKNOWN INDICATION
  3. PREDNISONE [Suspect]
     Dosage: REDUCED
  4. TAMAROL [Concomitant]
     Indication: PROCTALGIA
  5. ZOLOFT [Concomitant]
     Indication: DEPRESSION
  6. NOVOLOG [Concomitant]
     Indication: TYPE 2 DIABETES MELLITUS
     Dosage: 70/30

REACTIONS (6)
  - Blood glucose increased [Unknown]
  - Proctalgia [Unknown]
  - Flatulence [Unknown]
  - Drug ineffective [Unknown]
  - Diarrhoea [Unknown]
  - Abdominal pain [Unknown]
